FAERS Safety Report 10260614 (Version 1)
Quarter: 2014Q2

REPORT INFORMATION
  Report Type: Spontaneous
  Country: BR (occurrence: BR)
  Receive Date: 20140626
  Receipt Date: 20140626
  Transmission Date: 20141212
  Serious: Yes (Other)
  Sender: FDA-Public Use
  Company Number: BR-ROCHE-1420711

PATIENT
  Sex: Female
  Weight: 56 kg

DRUGS (4)
  1. FUZEON [Suspect]
     Indication: HIV INFECTION
     Route: 065
     Dates: start: 2006
  2. RALTEGRAVIR [Concomitant]
     Route: 065
  3. TENOFOVIR [Concomitant]
     Route: 065
  4. LAMIVUDINE [Concomitant]
     Route: 065

REACTIONS (6)
  - Tuberculosis [Unknown]
  - Herpes zoster [Unknown]
  - Lymph gland infection [Not Recovered/Not Resolved]
  - Application site haematoma [Not Recovered/Not Resolved]
  - Application site oedema [Not Recovered/Not Resolved]
  - Application site pain [Not Recovered/Not Resolved]
